FAERS Safety Report 5093961-1 (Version None)
Quarter: 2006Q3

REPORT INFORMATION
  Report Type: 
  Country: None (occurrence: None)
  Receive Date: 20060829
  Receipt Date: 20060829
  Transmission Date: 20061208
  Serious: No
  Sender: FDA-Public Use
  Company Number: None

PATIENT
  Sex: Female
  Weight: 65.9 kg

DRUGS (7)
  1. CARBOPLATIN [Suspect]
     Dosage: 326 MG
  2. TAXOL [Suspect]
     Dosage: 220 MG
  3. ASPIRIN [Concomitant]
  4. GLIPIZIDE [Concomitant]
  5. GLUCOSAMINE SULFATE [Concomitant]
  6. HYDROCHLOROTHIAZIDE [Concomitant]
  7. LIPITOR [Concomitant]

REACTIONS (3)
  - HAEMOGLOBIN DECREASED [None]
  - NEUTROPHIL COUNT DECREASED [None]
  - WHITE BLOOD CELL COUNT DECREASED [None]
